FAERS Safety Report 10665729 (Version 2)
Quarter: 2014Q4

REPORT INFORMATION
  Report Type: Spontaneous
  Country: JP (occurrence: JP)
  Receive Date: 20141219
  Receipt Date: 20141229
  Transmission Date: 20150529
  Serious: Yes (Hospitalization)
  Sender: FDA-Public Use
  Company Number: JP-BRACCO-008684

PATIENT
  Age: 67 Year
  Sex: Male
  Weight: 58 kg

DRUGS (15)
  1. DEPAS [Concomitant]
     Active Substance: ETIZOLAM
  2. BFLUID [Concomitant]
     Active Substance: AMINO ACIDS\DEXTROSE\ELECTROLYTES NOS\VITAMINS
  3. SENNOSIDE [Concomitant]
     Active Substance: SENNOSIDES
  4. EL-SOLUTION NO.3 [Concomitant]
  5. TERNELIN [Concomitant]
     Active Substance: TIZANIDINE
  6. FEBURIC [Concomitant]
     Active Substance: FEBUXOSTAT
  7. METHYCOBAL [Concomitant]
     Active Substance: METHYLCOBALAMIN
  8. OLMETEC [Concomitant]
     Active Substance: OLMESARTAN MEDOXOMIL
  9. CELECOX [Concomitant]
     Active Substance: CELECOXIB
  10. TAKEPRON [Concomitant]
     Active Substance: LANSOPRAZOLE
  11. TRAMCET [Concomitant]
     Active Substance: ACETAMINOPHEN\TRAMADOL
  12. BAYASPIRIN [Concomitant]
     Active Substance: ASPIRIN
  13. REFLEX [Concomitant]
     Active Substance: MIRTAZAPINE
     Dates: end: 20141209
  14. TRICHLORMETHIAZIDE [Concomitant]
     Active Substance: TRICHLORMETHIAZIDE
  15. PROHANCE [Suspect]
     Active Substance: GADOTERIDOL
     Indication: NUCLEAR MAGNETIC RESONANCE IMAGING
     Route: 040
     Dates: start: 20141208, end: 20141208

REACTIONS (5)
  - Chest pain [Recovered/Resolved]
  - Hyperhidrosis [Recovered/Resolved]
  - Blood pressure decreased [Recovered/Resolved]
  - Shock [Recovered/Resolved]
  - Pallor [Recovered/Resolved]

NARRATIVE: CASE EVENT DATE: 20141208
